FAERS Safety Report 21792506 (Version 1)
Quarter: 2022Q4

REPORT INFORMATION
  Report Type: Spontaneous
  Country: CA (occurrence: None)
  Receive Date: 20221229
  Receipt Date: 20221229
  Transmission Date: 20230112
  Serious: Yes (Death)
  Sender: FDA-Public Use
  Company Number: CA-ROCHE-3253289

PATIENT
  Sex: Male

DRUGS (10)
  1. RITUXIMAB [Suspect]
     Active Substance: RITUXIMAB
     Indication: Chronic graft versus host disease
     Route: 042
  2. ACETAMINOPHEN [Concomitant]
     Active Substance: ACETAMINOPHEN
     Route: 048
  3. CALCIUM [Concomitant]
     Active Substance: CALCIUM
     Route: 065
  4. DIPHENHYDRAMINE HYDROCHLORIDE [Concomitant]
     Active Substance: DIPHENHYDRAMINE HYDROCHLORIDE
     Route: 065
  5. MAGNESIUM [Concomitant]
     Active Substance: MAGNESIUM
  6. PERINDOPRIL [Concomitant]
     Active Substance: PERINDOPRIL
  7. PREDNISONE [Concomitant]
     Active Substance: PREDNISONE
     Route: 065
  8. SINEMET [Concomitant]
     Active Substance: CARBIDOPA\LEVODOPA
     Route: 065
  9. VALACYCLOVIR HYDROCHLORIDE [Concomitant]
     Active Substance: VALACYCLOVIR HYDROCHLORIDE
     Route: 065
  10. SULFAMETHOXAZOLE\TRIMETHOPRIM [Concomitant]
     Active Substance: SULFAMETHOXAZOLE\TRIMETHOPRIM

REACTIONS (2)
  - Death [Fatal]
  - Off label use [Fatal]
